FAERS Safety Report 7118261-7 (Version None)
Quarter: 2010Q4

REPORT INFORMATION
  Report Type: 
  Country: None (occurrence: None)
  Receive Date: 20101118
  Receipt Date: 20101118
  Transmission Date: 20110411
  Serious: No
  Sender: FDA-Public Use
  Company Number: None

PATIENT
  Age: 70 Year
  Sex: Male

DRUGS (1)
  1. TERAZOSIN HCL [Suspect]
     Dosage: 4 MG HS PO
     Route: 048
     Dates: start: 20100819, end: 20100907

REACTIONS (1)
  - ARTHRALGIA [None]
